FAERS Safety Report 12296761 (Version 2)
Quarter: 2016Q2

REPORT INFORMATION
  Report Type: Spontaneous
  Country: AU (occurrence: AU)
  Receive Date: 20160422
  Receipt Date: 20160425
  Transmission Date: 20160815
  Serious: Yes (Death)
  Sender: FDA-Public Use
  Company Number: PHHY2016AU053386

PATIENT
  Age: 49 Year
  Sex: Male

DRUGS (2)
  1. DABRAFENIB [Suspect]
     Active Substance: DABRAFENIB
     Indication: THYROID CANCER
     Dosage: 150 MG, BID
     Route: 065
  2. PACLITAXEL. [Suspect]
     Active Substance: PACLITAXEL
     Indication: THYROID CANCER
     Dosage: UNK UNK, QW
     Route: 065

REACTIONS (4)
  - Metastases to the mediastinum [Fatal]
  - Superior vena cava occlusion [Fatal]
  - Malignant neoplasm progression [Fatal]
  - Off label use [Unknown]
